FAERS Safety Report 21399773 (Version 1)
Quarter: 2022Q4

REPORT INFORMATION
  Report Type: Spontaneous
  Country: DE (occurrence: DE)
  Receive Date: 20221001
  Receipt Date: 20221001
  Transmission Date: 20230113
  Serious: Yes (Hospitalization)
  Sender: FDA-Public Use
  Company Number: DE-ADRED-07871-01

PATIENT
  Age: 62 Year
  Sex: Male

DRUGS (6)
  1. PREDNISOLONE [Suspect]
     Active Substance: PREDNISOLONE
     Indication: Product used for unknown indication
     Dosage: 20 MILLIGRAM DAILY; 1-0-0-0
  2. DAPAGLIFLOZIN PROPANEDIOL\METFORMIN HYDROCHLORIDE [Concomitant]
     Active Substance: DAPAGLIFLOZIN PROPANEDIOL\METFORMIN HYDROCHLORIDE
     Indication: Product used for unknown indication
     Dosage: 1 DOSAGE FORMS DAILY; 1-0-0-0
  3. ASCORBIC ACID [Concomitant]
     Active Substance: ASCORBIC ACID
     Indication: Product used for unknown indication
     Dosage: 1000 MILLIGRAM DAILY;  1-0-0-0
  4. ZINC [Concomitant]
     Active Substance: ZINC
     Indication: Product used for unknown indication
     Dosage: 1 DOSAGE FORMS DAILY; 1-0-0-0
  5. METFORMIN [Concomitant]
     Active Substance: METFORMIN HYDROCHLORIDE
     Indication: Product used for unknown indication
     Dosage: 1000 MILLIGRAM DAILY; 1-0-0-0
  6. DIMENHYDRINATE [Concomitant]
     Active Substance: DIMENHYDRINATE
     Indication: Product used for unknown indication
     Dosage: 3 DOSAGE FORMS DAILY; 1-1-1-0

REACTIONS (6)
  - Dyspnoea [Unknown]
  - Acute respiratory failure [Unknown]
  - COVID-19 pneumonia [Unknown]
  - Systemic infection [Unknown]
  - General physical health deterioration [Unknown]
  - Tachypnoea [Unknown]
